FAERS Safety Report 6313715-5 (Version None)
Quarter: 2009Q3

REPORT INFORMATION
  Report Type: 
  Country: None (occurrence: None)
  Receive Date: 20090818
  Receipt Date: 19990623
  Transmission Date: 20100115
  Serious: No
  Sender: FDA-Public Use
  Company Number: US-BRISTOL-MYERS SQUIBB COMPANY-10031144

PATIENT
  Sex: Female

DRUGS (5)
  1. ZERIT [Suspect]
     Indication: HIV INFECTION
     Route: 048
     Dates: start: 19981109, end: 19990323
  2. NELFINAVIR [Suspect]
     Indication: HIV INFECTION
     Route: 048
     Dates: start: 19981109, end: 19990323
  3. NELFINAVIR [Suspect]
     Dosage: DOSE NOT REPORTED; DRUG RESTARTED
     Route: 048
     Dates: start: 19990603
  4. LODENOSINE [Suspect]
     Indication: HIV INFECTION
     Route: 048
     Dates: start: 19981013, end: 19990323
  5. LAMIVUDINE + ZIDOVUDINE [Suspect]
     Indication: HIV INFECTION
     Route: 048
     Dates: start: 19990603

REACTIONS (2)
  - ABORTION INDUCED [None]
  - PREGNANCY [None]
